FAERS Safety Report 8166858-8 (Version None)
Quarter: 2012Q1

REPORT INFORMATION
  Report Type: 
  Country: None (occurrence: None)
  Receive Date: 20120227
  Receipt Date: 20120221
  Transmission Date: 20120608
  Serious: Yes (Hospitalization)
  Sender: FDA-Public Use
  Company Number: DE-ROCHE-1026464

PATIENT
  Sex: Female
  Weight: 61 kg

DRUGS (8)
  1. OXALIPLATIN [Suspect]
     Indication: ADENOCARCINOMA
     Route: 042
     Dates: start: 20111212
  2. PREDNISOLONE [Concomitant]
     Route: 048
  3. METOPROLOL SUCCINATE [Concomitant]
     Indication: HYPERTENSION
     Route: 048
  4. LEVOTHYROXINE SODIUM [Concomitant]
     Route: 048
  5. XELODA [Suspect]
     Indication: ADENOCARCINOMA
     Route: 048
     Dates: start: 20111212, end: 20111225
  6. ACETYLSALICYLIC ACID SRT [Concomitant]
     Indication: HYPERTENSION
     Route: 048
  7. AVASTIN [Suspect]
     Indication: ADENOCARCINOMA
     Route: 042
     Dates: start: 20111212
  8. XELODA [Suspect]
     Route: 048
     Dates: start: 20111225

REACTIONS (6)
  - GENERAL PHYSICAL HEALTH DETERIORATION [None]
  - FALL [None]
  - NAUSEA [None]
  - LEUKOPENIA [None]
  - VOMITING [None]
  - ASTHENIA [None]
